FAERS Safety Report 16773284 (Version 2)
Quarter: 2020Q1

REPORT INFORMATION
  Report Type: Spontaneous
  Country: CA (occurrence: CA)
  Receive Date: 20190904
  Receipt Date: 20200218
  Transmission Date: 20200409
  Serious: Yes (Other)
  Sender: FDA-Public Use
  Company Number: CA-GLAXOSMITHKLINE-CA2019AMR160261

PATIENT
  Sex: Female

DRUGS (2)
  1. NUCALA [Suspect]
     Active Substance: MEPOLIZUMAB
     Dosage: 100 UG, Z
     Route: 058
  2. NUCALA [Suspect]
     Active Substance: MEPOLIZUMAB
     Indication: ASTHMA
     Dosage: 100 UG, Z (MONTHLY)
     Route: 058
     Dates: start: 201905

REACTIONS (6)
  - Dizziness [Unknown]
  - Hyperhidrosis [Unknown]
  - Tunnel vision [Unknown]
  - Hypoglycaemia [Recovered/Resolved]
  - Fatigue [Unknown]
  - Malaise [Unknown]
